FAERS Safety Report 9532175 (Version 1)
Quarter: 2013Q3

REPORT INFORMATION
  Report Type: Spontaneous
  Country: US (occurrence: None)
  Receive Date: 20130916
  Receipt Date: 20130916
  Transmission Date: 20140515
  Serious: Yes (Hospitalization)
  Sender: FDA-Public Use
  Company Number: LMI-2013-00384

PATIENT
  Age: 51 Year
  Sex: Female

DRUGS (1)
  1. DEFINITY [Suspect]
     Indication: ECHOCARDIOGRAM
     Route: 042

REACTIONS (4)
  - Respiratory distress [None]
  - Acute pulmonary oedema [None]
  - Ejection fraction decreased [None]
  - Mitral valve incompetence [None]
